FAERS Safety Report 7783713-3 (Version None)
Quarter: 2011Q3

REPORT INFORMATION
  Report Type: 
  Country: None (occurrence: None)
  Receive Date: 20110926
  Receipt Date: 20110914
  Transmission Date: 20111222
  Serious: Yes (Death, Hospitalization)
  Sender: FDA-Public Use
  Company Number: UTC-009504

PATIENT
  Age: 76 Year
  Sex: Female

DRUGS (1)
  1. REMODULIN [Suspect]
     Dosage: SUBCUTANEOUS
     Route: 058

REACTIONS (4)
  - FALL [None]
  - MALAISE [None]
  - RESPIRATORY ARREST [None]
  - HIP FRACTURE [None]
